FAERS Safety Report 4599648-3 (Version None)
Quarter: 2005Q1

REPORT INFORMATION
  Report Type: 
  Country: None (occurrence: None)
  Receive Date: 20050304
  Receipt Date: 20050304
  Transmission Date: 20050727
  Serious: No
  Sender: FDA-Public Use
  Company Number: None

PATIENT
  Age: 73 Year
  Sex: Male
  Weight: 78.4723 kg

DRUGS (1)
  1. VIOXX [Suspect]
     Dosage: 1 TAB TWICE DAILY/5 1/2 YERAS DIALYSIS

REACTIONS (3)
  - BLOOD PRESSURE INADEQUATELY CONTROLLED [None]
  - GASTRIC HAEMORRHAGE [None]
  - STENT PLACEMENT [None]
